FAERS Safety Report 13700631 (Version 1)
Quarter: 2017Q2

REPORT INFORMATION
  Report Type: Spontaneous
  Country: US (occurrence: US)
  Receive Date: 20170629
  Receipt Date: 20170629
  Transmission Date: 20170830
  Serious: No
  Sender: FDA-Public Use
  Company Number: US-VIFOR (INTERNATIONAL) INC.-VIT-2017-00586

PATIENT
  Age: 48 Year
  Sex: Male
  Weight: 140 kg

DRUGS (1)
  1. VELPHORO [Suspect]
     Active Substance: FERRIC OXYHYDROXIDE
     Indication: HYPERPHOSPHATAEMIA
     Route: 048
     Dates: start: 20170104

REACTIONS (2)
  - Chest discomfort [Recovered/Resolved]
  - Excessive exercise [Unknown]

NARRATIVE: CASE EVENT DATE: 201701
